FAERS Safety Report 5154458-3 (Version None)
Quarter: 2006Q4

REPORT INFORMATION
  Report Type: 
  Country: None (occurrence: None)
  Receive Date: 20061120
  Receipt Date: 20061110
  Transmission Date: 20070319
  Serious: Yes (Congenital Anomaly)
  Sender: FDA-Public Use
  Company Number: DK-ABBOTT-06P-044-0350013-00

PATIENT
  Age: 2 Year
  Sex: Female

DRUGS (1)
  1. DEPAKENE [Suspect]
     Indication: DRUG EXPOSURE DURING PREGNANCY
     Route: 065

REACTIONS (3)
  - DEVELOPMENTAL DELAY [None]
  - FOETAL ANTICONVULSANT SYNDROME [None]
  - UNEVALUABLE EVENT [None]
